FAERS Safety Report 20993046 (Version 1)
Quarter: 2022Q2

REPORT INFORMATION
  Report Type: Spontaneous
  Country: US (occurrence: US)
  Receive Date: 20220622
  Receipt Date: 20220622
  Transmission Date: 20220721
  Serious: No
  Sender: FDA-Public Use
  Company Number: US-TEVA-2022-US-2046841

PATIENT
  Sex: Male

DRUGS (1)
  1. PROAIR HFA [Suspect]
     Active Substance: ALBUTEROL SULFATE
     Indication: Product used for unknown indication
     Dosage: DOSAGE FORM: INHALATION - AEROSOL
     Route: 065

REACTIONS (4)
  - Retching [Unknown]
  - Device malfunction [Unknown]
  - Device delivery system issue [Unknown]
  - Product contamination physical [Unknown]
